FAERS Safety Report 8520088-6 (Version None)
Quarter: 2012Q3

REPORT INFORMATION
  Report Type: 
  Country: None (occurrence: None)
  Receive Date: 20120719
  Receipt Date: 20120713
  Transmission Date: 20120928
  Serious: Yes (Other)
  Sender: FDA-Public Use
  Company Number: US-BAYER-2012-046393

PATIENT
  Age: 34 Year
  Sex: Female
  Weight: 59.41 kg

DRUGS (1)
  1. MIRENA [Suspect]
     Indication: CONTRACEPTION
     Dosage: 20 MCG/24HR, CONT
     Route: 015
     Dates: start: 20111028, end: 20120518

REACTIONS (2)
  - UTERINE PERFORATION [None]
  - VAGINAL HAEMORRHAGE [None]
